FAERS Safety Report 14875910 (Version 6)
Quarter: 2023Q2

REPORT INFORMATION
  Report Type: Spontaneous
  Country: HU (occurrence: HU)
  Receive Date: 20180510
  Receipt Date: 20230525
  Transmission Date: 20230721
  Serious: Yes (Hospitalization, Other)
  Sender: FDA-Public Use
  Company Number: None

PATIENT
  Age: 69 Year
  Sex: Female

DRUGS (18)
  1. RAMIPRIL [Suspect]
     Active Substance: RAMIPRIL
     Indication: Hypertension
     Dosage: 10 MG, QD
  2. RAMIPRIL [Suspect]
     Active Substance: RAMIPRIL
     Dosage: UNK, BID
  3. ASPIRIN [Suspect]
     Active Substance: ASPIRIN
     Indication: Hypertension
     Dosage: UNK UNK,UNK
  4. ALPRAZOLAM [Suspect]
     Active Substance: ALPRAZOLAM
     Indication: Salvage therapy
     Dosage: TID, PRN
  5. ALPRAZOLAM [Suspect]
     Active Substance: ALPRAZOLAM
     Indication: Hypertension
     Dosage: UNK UNK, QD
     Route: 065
  6. AMLODIPINE [Suspect]
     Active Substance: AMLODIPINE BESYLATE
     Indication: Hypertension
     Dosage: 1 DF, IN THE MORNING
  7. AMLODIPINE [Suspect]
     Active Substance: AMLODIPINE BESYLATE
     Dosage: UNK
  8. INDAPAMIDE [Suspect]
     Active Substance: INDAPAMIDE
     Indication: Hypertension
     Dosage: UNK UNK,UNK
  9. INDAPAMIDE [Suspect]
     Active Substance: INDAPAMIDE
     Dosage: UNK
  10. DOXAZOSIN MESYLATE [Suspect]
     Active Substance: DOXAZOSIN MESYLATE
     Indication: Hypertension
     Dosage: UNK, QD
  11. HYDROCHLOROTHIAZIDE\LOSARTAN POTASSIUM [Suspect]
     Active Substance: HYDROCHLOROTHIAZIDE\LOSARTAN POTASSIUM
     Indication: Hypertension
     Dosage: UNK
     Dates: start: 2015
  12. HYDROCHLOROTHIAZIDE\LOSARTAN POTASSIUM [Suspect]
     Active Substance: HYDROCHLOROTHIAZIDE\LOSARTAN POTASSIUM
     Indication: Vertigo
  13. AMLODIPINE\RAMIPRIL [Suspect]
     Active Substance: AMLODIPINE\RAMIPRIL
     Indication: Hypertension
     Dosage: 10 MG, QD
  14. BETAHISTINE [Concomitant]
     Active Substance: BETAHISTINE
     Indication: Hypertension
     Dosage: UNK UNK, QD
  15. NITROGLYCERIN [Concomitant]
     Active Substance: NITROGLYCERIN
     Indication: Hypertension
     Dosage: PRN (2 PUFFS/0.5 HOURS)
  16. CAPTOPRIL [Concomitant]
     Active Substance: CAPTOPRIL
     Indication: Hypertension
     Dosage: UNK UNK,PRN
  17. CAPTOPRIL [Concomitant]
     Active Substance: CAPTOPRIL
     Indication: Salvage therapy
  18. RILMENIDINE [Concomitant]
     Active Substance: RILMENIDINE
     Indication: Hypertension
     Dosage: 2 DF, 2 TABLET AT NOON

REACTIONS (12)
  - Hypertension [Recovered/Resolved]
  - Heart valve incompetence [Unknown]
  - Hyperlipidaemia [Unknown]
  - Left ventricular hypertrophy [Unknown]
  - Angiopathy [Unknown]
  - Blood pressure fluctuation [Recovered/Resolved]
  - Oedema peripheral [Recovered/Resolved]
  - Overweight [Unknown]
  - Hypotension [Recovered/Resolved]
  - Renal impairment [Unknown]
  - Condition aggravated [Recovered/Resolved]
  - Drug ineffective [Unknown]
